FAERS Safety Report 5386115-2 (Version None)
Quarter: 2007Q3

REPORT INFORMATION
  Report Type: 
  Country: None (occurrence: None)
  Receive Date: 20070711
  Receipt Date: 20070711
  Transmission Date: 20080115
  Serious: Yes (Life-Threatening, Hospitalization, Other)
  Sender: FDA-Public Use
  Company Number: None

PATIENT
  Sex: Female
  Weight: 90.7194 kg

DRUGS (1)
  1. ORTHO EVRA [Suspect]
     Indication: CONTRACEPTION
     Dosage: 1 PATCH 1 PATCH / WK TRANSDERMAL
     Route: 062
     Dates: start: 20050901, end: 20051001

REACTIONS (3)
  - ABASIA [None]
  - PAIN IN EXTREMITY [None]
  - THROMBOSIS [None]
